FAERS Safety Report 5862150-2 (Version None)
Quarter: 2008Q3

REPORT INFORMATION
  Report Type: 
  Country: None (occurrence: None)
  Receive Date: 20080828
  Receipt Date: 20070809
  Transmission Date: 20090109
  Serious: No
  Sender: FDA-Public Use
  Company Number: A0662568A

PATIENT
  Age: 66 Year
  Sex: Female
  Weight: 82.7 kg

DRUGS (2)
  1. ZOVIRAX [Suspect]
     Route: 061
     Dates: start: 20070625
  2. ABREVA [Suspect]
     Route: 061
     Dates: start: 20070603

REACTIONS (3)
  - APPLICATION SITE IRRITATION [None]
  - APPLICATION SITE VESICLES [None]
  - LIP HAEMORRHAGE [None]
